FAERS Safety Report 9355799 (Version 4)
Quarter: 2013Q3

REPORT INFORMATION
  Report Type: Spontaneous
  Country: JP (occurrence: JP)
  Receive Date: 20130619
  Receipt Date: 20130723
  Transmission Date: 20140515
  Serious: Yes (Hospitalization, Other)
  Sender: FDA-Public Use
  Company Number: PHHY2013JP061514

PATIENT
  Age: 56 Year
  Sex: Male
  Weight: 80 kg

DRUGS (11)
  1. CARBAMAZEPINE [Suspect]
     Indication: SCHIZOPHRENIA
     Dosage: 300 MG, DAILY
     Dates: start: 2002, end: 201011
  2. VEGETAMIN A [Suspect]
     Indication: SCHIZOPHRENIA
     Dosage: UNK UKN, UNK
     Route: 048
     Dates: start: 2002
  3. VEGETAMIN A [Suspect]
     Dosage: 150 MG, UNK
     Route: 048
  4. LEVOTOMIN [Concomitant]
     Indication: SCHIZOPHRENIA
     Dosage: 150 MG, UNK
     Route: 048
     Dates: start: 2002
  5. HIRNAMIN [Concomitant]
     Indication: SCHIZOPHRENIA
     Dosage: 100 MG, UNK
     Dates: start: 2002
  6. GASTRIC [Concomitant]
  7. AKINETON [Concomitant]
     Indication: SCHIZOPHRENIA
     Dosage: 3 MG, UNK
     Dates: start: 2002
  8. PYRETHIA//PROMETHAZINE HYDROCHLORIDE [Concomitant]
     Indication: SCHIZOPHRENIA
     Dosage: 100 MG, UNK
     Dates: start: 2002
  9. ABILIFY [Concomitant]
     Indication: SCHIZOPHRENIA
     Dosage: 18 MG, UNK
     Route: 048
     Dates: start: 2002
  10. LODOPIN [Concomitant]
     Indication: SCHIZOPHRENIA
     Dosage: 200 MG, UNK
     Route: 048
     Dates: start: 2002
  11. TETRAMIDE [Concomitant]
     Indication: SCHIZOPHRENIA
     Dosage: 60 MG, UNK
     Route: 048
     Dates: start: 2002

REACTIONS (13)
  - Lung disorder [Recovered/Resolved]
  - Nasopharyngitis [Recovered/Resolved]
  - Respiratory failure [Recovered/Resolved]
  - Depressed level of consciousness [Recovering/Resolving]
  - Pneumonitis [Recovering/Resolving]
  - Pyrexia [Recovering/Resolving]
  - Computerised tomogram thorax abnormal [Recovering/Resolving]
  - Pulmonary mass [Recovering/Resolving]
  - Bronchial wall thickening [Recovering/Resolving]
  - Wheezing [Recovering/Resolving]
  - Malaise [Recovering/Resolving]
  - Pneumonia [Unknown]
  - Sepsis [Recovered/Resolved]
